FAERS Safety Report 4429231-1 (Version None)
Quarter: 2004Q3

REPORT INFORMATION
  Report Type: 
  Country: None (occurrence: None)
  Receive Date: 20040817
  Receipt Date: 20040817
  Transmission Date: 20050211
  Serious: No
  Sender: FDA-Public Use
  Company Number: None

PATIENT
  Age: 43 Year
  Sex: Male
  Weight: 75 kg

DRUGS (1)
  1. RITUXAN [Suspect]
     Indication: GRAFT VERSUS HOST DISEASE
     Dosage: 375 MG/M2 WEEKLY IV
     Route: 042
     Dates: start: 20040503, end: 20040524

REACTIONS (3)
  - CONJUNCTIVITIS VIRAL [None]
  - CORNEAL ABRASION [None]
  - VISUAL ACUITY REDUCED [None]
